FAERS Safety Report 11913319 (Version 1)
Quarter: 2016Q1

REPORT INFORMATION
  Report Type: Spontaneous
  Country: None (occurrence: None)
  Receive Date: 20160112
  Receipt Date: 20160112
  Transmission Date: 20160526
  Serious: Yes (Hospitalization)
  Sender: FDA-Public Use
  Company Number: None

PATIENT
  Age: 67 Year
  Sex: Female
  Weight: 108 kg

DRUGS (2)
  1. LINEZOLID 600 MG [Suspect]
     Active Substance: LINEZOLID
     Indication: STAPHYLOCOCCAL INFECTION
     Route: 048
  2. LINEZOLID 600 MG [Suspect]
     Active Substance: LINEZOLID
     Indication: ABDOMINAL ABSCESS
     Route: 048

REACTIONS (2)
  - Upper gastrointestinal haemorrhage [None]
  - Anaemia [None]

NARRATIVE: CASE EVENT DATE: 20160110
